FAERS Safety Report 15285514 (Version 1)
Quarter: 2018Q3

REPORT INFORMATION
  Report Type: Spontaneous
  Country: IN (occurrence: IN)
  Receive Date: 20180816
  Receipt Date: 20180816
  Transmission Date: 20181010
  Serious: Yes (Death, Hospitalization, Other)
  Sender: FDA-Public Use
  Company Number: IN-ALLERGAN-1840052US

PATIENT
  Age: 67 Year
  Sex: Male

DRUGS (5)
  1. TRIPTORELIN PAMOATE ? BP [Suspect]
     Active Substance: TRIPTORELIN PAMOATE
     Indication: PROSTATE CANCER
     Dosage: 11.25 MG, UNK
     Route: 065
     Dates: start: 20180306, end: 20180306
  2. TRIPTORELIN PAMOATE ? BP [Suspect]
     Active Substance: TRIPTORELIN PAMOATE
     Dosage: 11.25 MG, UNK
     Route: 065
     Dates: start: 20160921, end: 20160921
  3. TRIPTORELIN PAMOATE ? BP [Suspect]
     Active Substance: TRIPTORELIN PAMOATE
     Dosage: 11.25 MG, Q 6 MONTHS
     Route: 065
     Dates: start: 20170331, end: 20170331
  4. TRIPTORELIN PAMOATE ? BP [Suspect]
     Active Substance: TRIPTORELIN PAMOATE
     Dosage: 11.25 MG, UNK
     Route: 065
     Dates: start: 20161230, end: 20161230
  5. TRIPTORELIN PAMOATE ? BP [Suspect]
     Active Substance: TRIPTORELIN PAMOATE
     Dosage: 11.25 MG, UNK
     Route: 065
     Dates: start: 20171007, end: 20171007

REACTIONS (9)
  - Proctalgia [Unknown]
  - Death [Fatal]
  - Acute kidney injury [Unknown]
  - Incorrect dose administered [Unknown]
  - Dysuria [Unknown]
  - Drug ineffective [Unknown]
  - Constipation [Unknown]
  - Transurethral prostatectomy [Unknown]
  - Electrolyte imbalance [Recovered/Resolved]

NARRATIVE: CASE EVENT DATE: 20180127
